FAERS Safety Report 20674219 (Version 1)
Quarter: 2022Q2

REPORT INFORMATION
  Report Type: Spontaneous
  Country: US (occurrence: None)
  Receive Date: 20220404
  Receipt Date: 20220404
  Transmission Date: 20220721
  Serious: Yes (Other)
  Sender: FDA-Public Use
  Company Number: None

PATIENT
  Age: 60 Year
  Sex: Female
  Weight: 89 kg

DRUGS (1)
  1. DEFINITY [Suspect]
     Active Substance: PERFLUTREN
     Indication: Imaging procedure
     Dates: start: 20220330, end: 20220330

REACTIONS (2)
  - Back pain [None]
  - Coccydynia [None]

NARRATIVE: CASE EVENT DATE: 20220330
